FAERS Safety Report 15125070 (Version 1)
Quarter: 2018Q3

REPORT INFORMATION
  Report Type: Spontaneous
  Country: US (occurrence: US)
  Receive Date: 20180710
  Receipt Date: 20180710
  Transmission Date: 20181010
  Serious: No
  Sender: FDA-Public Use
  Company Number: US-BAYER-2018-128866

PATIENT
  Age: 2 Year
  Sex: Female

DRUGS (1)
  1. CLARITIN [Suspect]
     Active Substance: LORATADINE
     Dosage: 15 DF, ONCE
     Route: 048
     Dates: start: 20180707, end: 20180707

REACTIONS (2)
  - Failure of child resistant mechanism for pharmaceutical product [Recovered/Resolved]
  - Accidental exposure to product by child [None]

NARRATIVE: CASE EVENT DATE: 20180707
